FAERS Safety Report 8836424 (Version 1)
Quarter: 2012Q4

REPORT INFORMATION
  Report Type: 
  Country: US (occurrence: US)
  Receive Date: 20121011
  Receipt Date: 20121011
  Transmission Date: 20130627
  Serious: No
  Sender: FDA-Public Use
  Company Number: US-ASTRAZENECA-2012SE75838

PATIENT
  Age: 56 Year
  Sex: Female

DRUGS (1)
  1. RHINOCORT [Suspect]
     Indication: MULTIPLE ALLERGIES
     Route: 045
     Dates: start: 201205

REACTIONS (4)
  - Scab [Unknown]
  - Epistaxis [Unknown]
  - Intentional drug misuse [Unknown]
  - Off label use [Unknown]
